FAERS Safety Report 4726216-2 (Version None)
Quarter: 2005Q3

REPORT INFORMATION
  Report Type: 
  Country: None (occurrence: None)
  Receive Date: 20050725
  Receipt Date: 20050725
  Transmission Date: 20060218
  Serious: Yes (Life-Threatening, Hospitalization)
  Sender: FDA-Public Use
  Company Number: None

PATIENT
  Age: 11 Year
  Sex: Male
  Weight: 40 kg

DRUGS (2)
  1. ETOPOSIDE [Suspect]
     Indication: GERM CELL CANCER
     Dosage: 190 MG ONCE PR
     Dates: start: 20050711, end: 20050711
  2. BLEOMYCIN [Concomitant]

REACTIONS (3)
  - CHILLS [None]
  - HYPOTENSION [None]
  - PALPITATIONS [None]
